FAERS Safety Report 7582001-8 (Version None)
Quarter: 2011Q2

REPORT INFORMATION
  Report Type: 
  Country: None (occurrence: None)
  Receive Date: 20110630
  Receipt Date: 20050118
  Transmission Date: 20111010
  Serious: No
  Sender: FDA-Public Use
  Company Number: US-BIOGENIDEC-2005BI001485

PATIENT
  Sex: Female

DRUGS (2)
  1. AVONEX [Concomitant]
     Indication: MULTIPLE SCLEROSIS
     Route: 030
  2. TYSABRI [Suspect]
     Indication: MULTIPLE SCLEROSIS
     Route: 042
     Dates: start: 20050101, end: 20050101

REACTIONS (6)
  - LATEX ALLERGY [None]
  - DRUG HYPERSENSITIVITY [None]
  - ANXIETY [None]
  - FOOD ALLERGY [None]
  - HYPERSENSITIVITY [None]
  - MULTIPLE SCLEROSIS [None]
